FAERS Safety Report 8849836 (Version 1)
Quarter: 2012Q4

REPORT INFORMATION
  Report Type: 
  Country: US (occurrence: US)
  Receive Date: 20121019
  Receipt Date: 20121019
  Transmission Date: 20130627
  Serious: Yes (Hospitalization, Other)
  Sender: FDA-Public Use
  Company Number: US-ELI_LILLY_AND_COMPANY-US201210004594

PATIENT
  Age: 70 Year
  Sex: Female
  Weight: 68 kg

DRUGS (16)
  1. EFFIENT [Suspect]
     Indication: STENT PLACEMENT
     Dosage: 10 mg, qd
     Route: 065
  2. CRESTOR [Concomitant]
  3. MISOPROSTOL [Concomitant]
  4. GLIMEPIRIDE [Concomitant]
  5. PEPCID [Concomitant]
  6. ASPIRIN [Concomitant]
  7. ALPRAZOLAM [Concomitant]
  8. CLONIDINE [Concomitant]
  9. PIOGLITAZONE HYDROCHLORIDE [Concomitant]
  10. POTASSIUM [Concomitant]
     Dosage: UNK, bid
  11. CARVEDILOL [Concomitant]
     Dosage: 12.5 mg, bid
  12. TRAMADOL [Concomitant]
  13. AZOR [Concomitant]
  14. GABAPENTIN [Concomitant]
  15. AMLODIPINE [Concomitant]
     Dosage: UNK, bid
  16. ISORBIDE [Concomitant]

REACTIONS (13)
  - Hospitalisation [Unknown]
  - Intracardiac thrombus [Unknown]
  - Thrombosis [Unknown]
  - Hypertension [Unknown]
  - Ocular hyperaemia [Unknown]
  - Weight decreased [Unknown]
  - Pigmentation disorder [Unknown]
  - Pallor [Unknown]
  - Paraesthesia [Unknown]
  - Diabetic neuropathy [Unknown]
  - Abdominal pain upper [Unknown]
  - Depression [Unknown]
  - Mouth haemorrhage [Unknown]
